FAERS Safety Report 24702210 (Version 1)
Quarter: 2024Q4

REPORT INFORMATION
  Report Type: Spontaneous
  Country: US (occurrence: US)
  Receive Date: 20241205
  Receipt Date: 20241205
  Transmission Date: 20250114
  Serious: Yes (Hospitalization, Other)
  Sender: CIPLA
  Company Number: US-MLMSERVICE-20241118-PI262373-00082-1

PATIENT

DRUGS (32)
  1. CARBOPLATIN [Suspect]
     Active Substance: CARBOPLATIN
     Indication: Hodgkin^s disease
     Dosage: 3 CYCLES
     Route: 065
     Dates: start: 2018, end: 201812
  2. CARBOPLATIN [Suspect]
     Active Substance: CARBOPLATIN
     Indication: Metastases to lymph nodes
  3. BLEOMYCIN [Suspect]
     Active Substance: BLEOMYCIN SULFATE
     Indication: Hodgkin^s disease
     Dosage: 4 CYCLES OF ABVD CHEMOTHERAPY
     Route: 065
     Dates: start: 2018, end: 2018
  4. BLEOMYCIN [Suspect]
     Active Substance: BLEOMYCIN SULFATE
     Indication: Metastases to liver
  5. BLEOMYCIN [Suspect]
     Active Substance: BLEOMYCIN SULFATE
     Indication: Intestinal metastasis
  6. BLEOMYCIN [Suspect]
     Active Substance: BLEOMYCIN SULFATE
     Indication: Metastases to adrenals
  7. BLEOMYCIN [Suspect]
     Active Substance: BLEOMYCIN SULFATE
     Indication: Metastases to peritoneum
  8. BLEOMYCIN [Suspect]
     Active Substance: BLEOMYCIN SULFATE
     Indication: Metastases to lymph nodes
  9. DOXORUBICIN [Suspect]
     Active Substance: DOXORUBICIN
     Indication: Hodgkin^s disease
     Dosage: 4 CYCLES OF ABVD CHEMOTHERAPY
     Route: 065
     Dates: start: 2018, end: 2018
  10. DOXORUBICIN [Suspect]
     Active Substance: DOXORUBICIN
     Indication: Metastases to liver
  11. DOXORUBICIN [Suspect]
     Active Substance: DOXORUBICIN
     Indication: Intestinal metastasis
  12. DOXORUBICIN [Suspect]
     Active Substance: DOXORUBICIN
     Indication: Metastases to adrenals
  13. DOXORUBICIN [Suspect]
     Active Substance: DOXORUBICIN
     Indication: Metastases to peritoneum
  14. DOXORUBICIN [Suspect]
     Active Substance: DOXORUBICIN
     Indication: Metastases to lymph nodes
  15. VINBLASTINE [Suspect]
     Active Substance: VINBLASTINE
     Indication: Hodgkin^s disease
     Dosage: 4 CYCLES OF ABVD CHEMOTHERAPY
     Route: 065
     Dates: start: 2018, end: 2018
  16. VINBLASTINE [Suspect]
     Active Substance: VINBLASTINE
     Indication: Metastases to liver
  17. VINBLASTINE [Suspect]
     Active Substance: VINBLASTINE
     Indication: Intestinal metastasis
  18. VINBLASTINE [Suspect]
     Active Substance: VINBLASTINE
     Indication: Metastases to adrenals
  19. VINBLASTINE [Suspect]
     Active Substance: VINBLASTINE
     Indication: Metastases to peritoneum
  20. VINBLASTINE [Suspect]
     Active Substance: VINBLASTINE
     Indication: Metastases to lymph nodes
  21. DACARBAZINE [Suspect]
     Active Substance: DACARBAZINE
     Indication: Hodgkin^s disease
     Dosage: 4 CYCLES OF ABVD CHEMOTHERAPY
     Route: 065
     Dates: start: 2018, end: 2018
  22. DACARBAZINE [Suspect]
     Active Substance: DACARBAZINE
     Indication: Metastases to liver
  23. DACARBAZINE [Suspect]
     Active Substance: DACARBAZINE
     Indication: Intestinal metastasis
  24. DACARBAZINE [Suspect]
     Active Substance: DACARBAZINE
     Indication: Metastases to adrenals
  25. DACARBAZINE [Suspect]
     Active Substance: DACARBAZINE
     Indication: Metastases to peritoneum
  26. DACARBAZINE [Suspect]
     Active Substance: DACARBAZINE
     Indication: Metastases to lymph nodes
  27. IFOSFAMIDE [Suspect]
     Active Substance: IFOSFAMIDE
     Indication: Hodgkin^s disease
     Dosage: 3 CYCLES
     Route: 065
     Dates: start: 2018, end: 201812
  28. IFOSFAMIDE [Suspect]
     Active Substance: IFOSFAMIDE
     Indication: Metastases to lymph nodes
  29. ETOPOSIDE [Suspect]
     Active Substance: ETOPOSIDE
     Indication: Hodgkin^s disease
     Dosage: 3 CYCLES
     Route: 065
     Dates: start: 2018, end: 201812
  30. ETOPOSIDE [Suspect]
     Active Substance: ETOPOSIDE
     Indication: Metastases to lymph nodes
  31. BRENTUXIMAB [Suspect]
     Active Substance: BRENTUXIMAB
     Indication: Hodgkin^s disease
     Dosage: 2 DOSES OF BRENTUXIMAB 3 WEEKS APART
     Route: 065
     Dates: start: 2019, end: 2019
  32. BRENTUXIMAB [Suspect]
     Active Substance: BRENTUXIMAB
     Indication: Metastases to lymph nodes

REACTIONS (3)
  - Myelosuppression [Unknown]
  - Tubulointerstitial nephritis [Recovering/Resolving]
  - Febrile neutropenia [Unknown]

NARRATIVE: CASE EVENT DATE: 20180101
